FAERS Safety Report 17716818 (Version 4)
Quarter: 2020Q3

REPORT INFORMATION
  Report Type: Spontaneous
  Country: US (occurrence: US)
  Receive Date: 20200428
  Receipt Date: 20200930
  Transmission Date: 20201102
  Serious: Yes (Hospitalization)
  Sender: FDA-Public Use
  Company Number: US-BAUSCH-BL-2020-012153

PATIENT
  Age: 62 Year
  Sex: Female
  Weight: 79.45 kg

DRUGS (9)
  1. VALIUM [Concomitant]
     Active Substance: DIAZEPAM
     Indication: PRODUCT USED FOR UNKNOWN INDICATION
     Dosage: AS DIRECTED
     Route: 048
  2. ADDERALL [Concomitant]
     Active Substance: AMPHETAMINE ASPARTATE\AMPHETAMINE SULFATE\DEXTROAMPHETAMINE SACCHARATE\DEXTROAMPHETAMINE SULFATE
     Indication: PRODUCT USED FOR UNKNOWN INDICATION
     Route: 048
  3. XIFAXAN [Suspect]
     Active Substance: RIFAXIMIN
     Route: 048
     Dates: start: 202004, end: 20200427
  4. XIFAXAN [Suspect]
     Active Substance: RIFAXIMIN
     Dosage: BEGAN RATIONING HER SUPPLY OF XIFAXAN
     Route: 048
     Dates: start: 20200922
  5. XIFAXAN [Suspect]
     Active Substance: RIFAXIMIN
     Indication: HEPATIC ENCEPHALOPATHY
     Dosage: APPROXIMATELY 5?10 YEARS PRIOR TO THE INITIAL REPORT.
     Route: 048
     Dates: end: 20200418
  6. XIFAXAN [Suspect]
     Active Substance: RIFAXIMIN
     Indication: HEPATITIS C
     Route: 048
     Dates: start: 20200425, end: 202004
  7. OMEPRAZOLE. [Concomitant]
     Active Substance: OMEPRAZOLE
     Indication: PRODUCT USED FOR UNKNOWN INDICATION
     Route: 048
  8. METHADONE [Concomitant]
     Active Substance: METHADONE HYDROCHLORIDE
     Indication: PRODUCT USED FOR UNKNOWN INDICATION
     Route: 048
  9. NEXIUM [Concomitant]
     Active Substance: ESOMEPRAZOLE MAGNESIUM
     Indication: PRODUCT USED FOR UNKNOWN INDICATION
     Route: 048

REACTIONS (9)
  - Hospitalisation [Unknown]
  - Balance disorder [Not Recovered/Not Resolved]
  - Therapy interrupted [Unknown]
  - Inappropriate schedule of product administration [Unknown]
  - Dizziness [Not Recovered/Not Resolved]
  - Confusional state [Recovering/Resolving]
  - Insurance issue [Unknown]
  - Ill-defined disorder [Not Recovered/Not Resolved]
  - Memory impairment [Not Recovered/Not Resolved]

NARRATIVE: CASE EVENT DATE: 2020
